FAERS Safety Report 19252594 (Version 1)
Quarter: 2021Q2

REPORT INFORMATION
  Report Type: Spontaneous
  Country: US (occurrence: US)
  Receive Date: 20210512
  Receipt Date: 20210512
  Transmission Date: 20210717
  Serious: No
  Sender: FDA-Public Use
  Company Number: US-ASTRAZENECA-2021A412515

PATIENT
  Age: 27216 Day
  Sex: Female
  Weight: 45.4 kg

DRUGS (2)
  1. AVASTIN [Suspect]
     Active Substance: BEVACIZUMAB
     Route: 065
     Dates: start: 202006
  2. LYNPARZA [Suspect]
     Active Substance: OLAPARIB
     Indication: OVARIAN CANCER
     Dosage: 1 TABLET IN THE MORNING AND 2 TABLETS AT NIGHT 12 HOURS APART
     Route: 048
     Dates: start: 20201027

REACTIONS (6)
  - Taste disorder [Recovered/Resolved]
  - Feeling abnormal [Unknown]
  - Dizziness [Unknown]
  - Diarrhoea [Unknown]
  - Inappropriate schedule of product administration [Unknown]
  - Fatigue [Unknown]

NARRATIVE: CASE EVENT DATE: 20210506
